FAERS Safety Report 8605608-5 (Version None)
Quarter: 2012Q3

REPORT INFORMATION
  Report Type: 
  Country: None (occurrence: None)
  Receive Date: 20120807
  Receipt Date: 20120717
  Transmission Date: 20120928
  Serious: Yes (Other)
  Sender: FDA-Public Use
  Company Number: PNIS20120021

PATIENT
  Sex: Male

DRUGS (2)
  1. VINCRISTINE [Concomitant]
  2. PREDNISOLONE [Suspect]
     Indication: HAEMANGIOMA-THROMBOCYTOPENIA SYNDROME
     Dosage: 3 MG/KG, 1 IN 1 D, ORAL
     Route: 048

REACTIONS (2)
  - NEONATAL CHOLESTASIS [None]
  - THROMBOCYTOPENIA NEONATAL [None]
